FAERS Safety Report 17061665 (Version 1)
Quarter: 2019Q4

REPORT INFORMATION
  Report Type: Spontaneous
  Country: NL (occurrence: NL)
  Receive Date: 20191121
  Receipt Date: 20191121
  Transmission Date: 20200122
  Serious: Yes (Other)
  Sender: FDA-Public Use
  Company Number: NL-MYLANLABS-2019M1112517

PATIENT
  Age: 67 Year
  Sex: Female
  Weight: 99 kg

DRUGS (6)
  1. METFORMIN [Suspect]
     Active Substance: METFORMIN HYDROCHLORIDE
     Indication: BLOOD GLUCOSE INCREASED
     Dosage: 2 X 2 TABLETTEN PER DAG
     Route: 048
     Dates: start: 2019, end: 20190627
  2. GLICLAZIDE SANDOZ [Concomitant]
     Active Substance: GLICLAZIDE
     Dosage: 1 X 2 TABLETTEN PER DAG
  3. ROSUVASTATINE CF [Concomitant]
     Dosage: 1 X 1 TABLET PER DAG
  4. SYMBICORT [Concomitant]
     Active Substance: BUDESONIDE\FORMOTEROL FUMARATE DIHYDRATE
     Dosage: 2 X PER DAG, ZONODIG MEER
  5. OMEPRAZOL                          /00661201/ [Concomitant]
     Active Substance: OMEPRAZOLE
     Dosage: 2 X 1 TABLET PER DAG
  6. ELIQUIS [Concomitant]
     Active Substance: APIXABAN
     Dosage: 2 X 1 TABLET PER DAG.

REACTIONS (3)
  - Condition aggravated [Recovered/Resolved]
  - Arrhythmia [Recovered/Resolved]
  - Pruritus [Recovered/Resolved]

NARRATIVE: CASE EVENT DATE: 2019
